FAERS Safety Report 6904218-5 (Version None)
Quarter: 2010Q3

REPORT INFORMATION
  Report Type: 
  Country: None (occurrence: None)
  Receive Date: 20100804
  Receipt Date: 20090326
  Transmission Date: 20110219
  Serious: No
  Sender: FDA-Public Use
  Company Number: US-PFIZER INC-2009167510

PATIENT
  Sex: Female
  Weight: 56.245 kg

DRUGS (3)
  1. LYRICA [Suspect]
     Indication: NECK PAIN
     Dosage: 100 MG, UNK
     Dates: start: 20080901
  2. PAXIL [Concomitant]
     Dosage: UNK
  3. SYNTHROID [Concomitant]
     Dosage: UNK

REACTIONS (4)
  - BREAST ENLARGEMENT [None]
  - HEADACHE [None]
  - NECK PAIN [None]
  - WEIGHT INCREASED [None]
